FAERS Safety Report 7758511-7 (Version None)
Quarter: 2011Q3

REPORT INFORMATION
  Report Type: 
  Country: None (occurrence: None)
  Receive Date: 20110825
  Receipt Date: 20110602
  Transmission Date: 20111222
  Serious: Yes (Hospitalization)
  Sender: FDA-Public Use
  Company Number: 329328

PATIENT
  Age: 48 Year
  Sex: Male
  Weight: 176.4 kg

DRUGS (9)
  1. GLIPIZIDE [Concomitant]
  2. METFORMIN HCL [Concomitant]
  3. BENAZEPRIL HYDROCHLORIDE [Concomitant]
  4. SIMVASTATIN [Concomitant]
  5. ASPIRIN [Concomitant]
  6. VICTOZA [Suspect]
     Indication: TYPE 2 DIABETES MELLITUS
     Dosage: 1.8 MG, QD, SUBCUTANEOUS
     Route: 058
     Dates: start: 20100811, end: 20110420
  7. FUROSEMIDE /00032602/ (FUROSEMIDE SODIUM) [Concomitant]
  8. MULTIVITAMIN /00097801/ (ASCORBIC ACID, CALCIUM PANTOTHENATE, ERGOCALC [Concomitant]
  9. ACTOS [Concomitant]

REACTIONS (1)
  - PANCREATITIS ACUTE [None]
